FAERS Safety Report 5493341-0 (Version None)
Quarter: 2007Q4

REPORT INFORMATION
  Report Type: 
  Country: None (occurrence: None)
  Receive Date: 20071022
  Receipt Date: 20071022
  Transmission Date: 20080405
  Serious: Yes (Hospitalization, Other)
  Sender: FDA-Public Use
  Company Number: None

PATIENT
  Age: 5 Year
  Sex: Male
  Weight: 20.4119 kg

DRUGS (1)
  1. DEXTROAMPHETAMINE 5MG BARR [Suspect]
     Indication: ATTENTION DEFICIT/HYPERACTIVITY DISORDER
     Dosage: 5 MG ONCE DAILY PO
     Route: 048
     Dates: start: 20071011, end: 20071017

REACTIONS (23)
  - ABNORMAL BEHAVIOUR [None]
  - AGGRESSION [None]
  - ANOREXIA [None]
  - CRYING [None]
  - DISTURBANCE IN ATTENTION [None]
  - DYSKINESIA [None]
  - DYSPHONIA [None]
  - FATIGUE [None]
  - GAIT DISTURBANCE [None]
  - HYPERACUSIS [None]
  - ILL-DEFINED DISORDER [None]
  - INAPPROPRIATE AFFECT [None]
  - INCREASED APPETITE [None]
  - INSOMNIA [None]
  - IRRITABILITY [None]
  - OBSESSIVE-COMPULSIVE DISORDER [None]
  - PERSONALITY CHANGE [None]
  - PSYCHOMOTOR HYPERACTIVITY [None]
  - RESTLESSNESS [None]
  - SCREAMING [None]
  - STARVATION [None]
  - TIC [None]
  - VERBAL ABUSE [None]
